FAERS Safety Report 9551982 (Version 1)
Quarter: 2013Q3

REPORT INFORMATION
  Report Type: Spontaneous
  Country: US (occurrence: None)
  Receive Date: 20130923
  Receipt Date: 20130923
  Transmission Date: 20140515
  Serious: Yes (Hospitalization)
  Sender: FDA-Public Use
  Company Number: None

PATIENT
  Age: 27 Year
  Sex: Female
  Weight: 86 kg

DRUGS (1)
  1. K-Y BRAND INTENSE EFFECTS PLEASURE FOR HER MASSAGE GEL [Suspect]
     Dosage: QUARTER SIZE
     Route: 067
     Dates: start: 20130829, end: 20130901

REACTIONS (1)
  - Application site reaction [None]
